FAERS Safety Report 8171813-8 (Version None)
Quarter: 2012Q1

REPORT INFORMATION
  Report Type: 
  Country: None (occurrence: None)
  Receive Date: 20120228
  Receipt Date: 20120222
  Transmission Date: 20120608
  Serious: Yes (Hospitalization)
  Sender: FDA-Public Use
  Company Number: SE-GLAXOSMITHKLINE-B0783671A

PATIENT
  Sex: Female

DRUGS (4)
  1. REQUIP [Suspect]
     Indication: HYPERTONIA
     Dosage: 1MG PER DAY
     Route: 048
     Dates: start: 20111004, end: 20111228
  2. PRAMIPEXOLE DIHYDROCHLORIDE [Suspect]
     Indication: HYPERTONIA
     Dosage: .18MG PER DAY
     Route: 048
     Dates: start: 20110706, end: 20111004
  3. COZAAR [Concomitant]
  4. FUROSEMIDE [Concomitant]

REACTIONS (19)
  - UNRESPONSIVE TO STIMULI [None]
  - BRUXISM [None]
  - CEREBRAL HYPOPERFUSION [None]
  - VOMITING [None]
  - MUSCLE SPASMS [None]
  - CONVULSION [None]
  - SYNCOPE [None]
  - FATIGUE [None]
  - NAUSEA [None]
  - MEMORY IMPAIRMENT [None]
  - DIZZINESS [None]
  - PALLOR [None]
  - LOSS OF CONSCIOUSNESS [None]
  - GAZE PALSY [None]
  - BLOOD PRESSURE DECREASED [None]
  - COLD SWEAT [None]
  - SNORING [None]
  - MUSCULOSKELETAL STIFFNESS [None]
  - STARING [None]
